FAERS Safety Report 8732408 (Version 2)
Quarter: 2012Q4

REPORT INFORMATION
  Report Type: 
  Country: FR (occurrence: FR)
  Receive Date: 20120820
  Receipt Date: 20121023
  Transmission Date: 20130627
  Serious: Yes (Death)
  Sender: FDA-Public Use
  Company Number: FR-ROCHE-1095703

PATIENT
  Age: 89 Year
  Sex: Female

DRUGS (16)
  1. ROCEPHINE [Suspect]
     Indication: LUNG INFECTION
     Route: 058
     Dates: start: 20120618, end: 20120629
  2. ROCEPHINE [Suspect]
     Indication: CARDIAC FAILURE
  3. CYMBALTA [Suspect]
     Indication: ANXIETY
     Route: 048
     Dates: start: 20120626, end: 20120629
  4. LOVENOX [Suspect]
     Indication: PROPHYLAXIS
     Route: 058
     Dates: start: 20120618, end: 20120630
  5. OXYNORM [Suspect]
     Indication: ABDOMINAL PAIN
     Route: 048
     Dates: start: 20120618, end: 20120629
  6. SPECIAFOLDINE [Suspect]
     Indication: FOLATE DEFICIENCY
     Route: 048
     Dates: start: 20120619, end: 20120629
  7. KARDEGIC [Concomitant]
  8. INEXIUM [Concomitant]
  9. CALCIDOSE [Concomitant]
  10. PARACETAMOL [Concomitant]
  11. TRAMADOL [Concomitant]
  12. TRANSIPEG (FRANCE) [Concomitant]
  13. DIFFU K [Concomitant]
  14. GAVISCON (FRANCE) [Concomitant]
  15. FUROSEMIDE [Concomitant]
  16. ALPRAZOLAM [Concomitant]

REACTIONS (3)
  - Hepatocellular injury [Fatal]
  - Ocular icterus [Fatal]
  - Pyrexia [Fatal]
